FAERS Safety Report 19861816 (Version 3)
Quarter: 2022Q1

REPORT INFORMATION
  Report Type: Spontaneous
  Country: BR (occurrence: BR)
  Receive Date: 20210920
  Receipt Date: 20220104
  Transmission Date: 20220424
  Serious: Yes (Other)
  Sender: FDA-Public Use
  Company Number: BR-BIOMARINAP-BR-2021-138577

PATIENT
  Age: 10 Year
  Sex: Female
  Weight: 18 kg

DRUGS (2)
  1. ALDURAZYME [Suspect]
     Active Substance: LARONIDASE
     Indication: Mucopolysaccharidosis I
     Dosage: 209 MILLIGRAM, Q15D
     Route: 042
  2. ALDURAZYME [Suspect]
     Active Substance: LARONIDASE
     Dosage: 3 DOSAGE FORM, UNK
     Route: 042
     Dates: start: 20111101

REACTIONS (5)
  - Blindness [Recovering/Resolving]
  - Depressed mood [Unknown]
  - Insomnia [Unknown]
  - General physical health deterioration [Recovering/Resolving]
  - Inappropriate schedule of product administration [Unknown]

NARRATIVE: CASE EVENT DATE: 20190101
